FAERS Safety Report 6434589-8 (Version None)
Quarter: 2009Q4

REPORT INFORMATION
  Report Type: 
  Country: None (occurrence: None)
  Receive Date: 20091110
  Receipt Date: 20091103
  Transmission Date: 20100525
  Serious: Yes (Other)
  Sender: FDA-Public Use
  Company Number: A0814755A

PATIENT
  Age: 11 Year
  Sex: Female

DRUGS (2)
  1. ADVAIR DISKUS 100/50 [Suspect]
     Indication: ASTHMA
     Route: 055
     Dates: start: 20070101
  2. XOPENEX [Concomitant]

REACTIONS (4)
  - ASTHMA [None]
  - BRONCHITIS [None]
  - PRODUCT QUALITY ISSUE [None]
  - WHEEZING [None]
